FAERS Safety Report 6301060-3 (Version None)
Quarter: 2009Q3

REPORT INFORMATION
  Report Type: 
  Country: None (occurrence: None)
  Receive Date: 20090807
  Receipt Date: 20090729
  Transmission Date: 20100115
  Serious: Yes (Disabling)
  Sender: FDA-Public Use
  Company Number: BE-PFIZER INC-2009247809

PATIENT
  Age: 54 Year

DRUGS (2)
  1. FELDENE [Suspect]
     Indication: MUSCULOSKELETAL DISORDER
     Dosage: 20 MG, 1X/DAY
     Route: 048
     Dates: start: 20090120, end: 20090126
  2. FELDENE [Suspect]
     Indication: PERIOSTITIS

REACTIONS (1)
  - DEAFNESS UNILATERAL [None]
